FAERS Safety Report 20353413 (Version 1)
Quarter: 2022Q1

REPORT INFORMATION
  Report Type: Spontaneous
  Country: SE (occurrence: SE)
  Receive Date: 20220119
  Receipt Date: 20220119
  Transmission Date: 20220423
  Serious: Yes (Other)
  Sender: FDA-Public Use
  Company Number: None

PATIENT
  Age: 29 Year
  Sex: Male

DRUGS (3)
  1. SIMPONI [Suspect]
     Active Substance: GOLIMUMAB
     Indication: Arthritis
     Route: 058
     Dates: start: 20150205, end: 20210623
  2. NORSPAN [Concomitant]
     Active Substance: BUPRENORPHINE
     Route: 003
  3. LAMOTRIGINE [Concomitant]
     Active Substance: LAMOTRIGINE
     Dosage: 100 MG 1X2
     Route: 048

REACTIONS (1)
  - Acquired Von Willebrand^s disease [Recovering/Resolving]

NARRATIVE: CASE EVENT DATE: 20210512
